FAERS Safety Report 11705290 (Version 1)
Quarter: 2015Q4

REPORT INFORMATION
  Report Type: Spontaneous
  Country: US (occurrence: US)
  Receive Date: 20151106
  Receipt Date: 20151106
  Transmission Date: 20160304
  Serious: Yes (Death)
  Sender: FDA-Public Use
  Company Number: US-CELGENEUS-USA-2015110424

PATIENT
  Age: 72 Year
  Sex: Male

DRUGS (1)
  1. THALOMID [Suspect]
     Active Substance: THALIDOMIDE
     Indication: ARTERIOVENOUS MALFORMATION
     Dosage: 100 MILLIGRAM
     Route: 048
     Dates: start: 201403

REACTIONS (6)
  - Hypertrophic cardiomyopathy [Fatal]
  - Diabetes mellitus [Fatal]
  - Multi-organ failure [Fatal]
  - Lung disorder [Fatal]
  - Hypertension [Fatal]
  - Renal failure [Fatal]

NARRATIVE: CASE EVENT DATE: 20151025
